FAERS Safety Report 9767894 (Version 1)
Quarter: 2013Q3

REPORT INFORMATION
  Report Type: Spontaneous
  Country: US (occurrence: None)
  Receive Date: 20130827
  Receipt Date: 20130827
  Transmission Date: 20140515
  Serious: Yes (Hospitalization)
  Sender: FDA-Public Use
  Company Number: 163-21880-13073471

PATIENT
  Age: 70 Year
  Sex: Female
  Weight: 104.3 kg

DRUGS (10)
  1. REVLIMID (LENALIDOMIDE) (25 MILLIGRAM, CAPSULES) [Suspect]
     Indication: PLASMA CELL MYELOMA
     Route: 048
     Dates: start: 201101
  2. PREDNISONE (PREDNISONE) (TABLETS) [Concomitant]
  3. DOXYCYCLINE HYCLATE (DOXYCYCLINE HYCLATE) (TABLETS) [Concomitant]
  4. PROAIR HFA (SALBUTAMOL SULFATE) (INHALANT) [Concomitant]
  5. DEXAMETHASONE (DEXAMETHASONE) (TABLETS) [Concomitant]
  6. FUROSEMIDE (FUROSEMIDE) (TABLETS) [Concomitant]
  7. EXFORGE (AMLODIPINE W/VALSARTAN) (TABLETS) [Concomitant]
  8. KLOR-CON M20 (POTASSIUM CHLORIDE) (TABLETS) [Concomitant]
  9. OMEPRAZOLE (OMEPRAZOLE) (SUSTAINED-RELEASE CAPSULE) [Concomitant]
  10. WARFARIN SODIUM (WARFARIN SODIUM) (TABLETS) [Concomitant]

REACTIONS (38)
  - Nephrolithiasis [None]
  - Haematuria [None]
  - Blindness transient [None]
  - Blood count abnormal [None]
  - Disorientation [None]
  - Chest pain [None]
  - Headache [None]
  - Pruritus [None]
  - Swelling face [None]
  - Influenza [None]
  - Influenza like illness [None]
  - Rash generalised [None]
  - Skin atrophy [None]
  - Muscle spasms [None]
  - Contusion [None]
  - Dyspnoea [None]
  - Bone marrow failure [None]
  - Deafness [None]
  - Nasopharyngitis [None]
  - Arrhythmia [None]
  - Cystitis [None]
  - Lower respiratory tract infection [None]
  - Full blood count decreased [None]
  - Kidney infection [None]
  - Rash pruritic [None]
  - Haemorrhage subcutaneous [None]
  - Alopecia [None]
  - Skin ulcer [None]
  - Fatigue [None]
  - Drug dose omission [None]
  - Immunodeficiency [None]
  - Memory impairment [None]
  - Fall [None]
  - Oedema peripheral [None]
  - Vision blurred [None]
  - Platelet count decreased [None]
  - Pneumonia [None]
  - Dizziness [None]
